FAERS Safety Report 9521312 (Version 1)
Quarter: 2013Q3

REPORT INFORMATION
  Report Type: Spontaneous
  Country: US (occurrence: US)
  Receive Date: 20130913
  Receipt Date: 20130913
  Transmission Date: 20140515
  Serious: Yes (Other)
  Sender: FDA-Public Use
  Company Number: US-JNJCP-30000179007

PATIENT
  Sex: Female
  Weight: 70 kg

DRUGS (3)
  1. ROC MULTI-CORREXION EYE TREATMENT [Suspect]
     Indication: PRODUCT USED FOR UNKNOWN INDICATION
     Dosage: LESS THAN A PENNY SIZE AMOUNT
     Route: 061
     Dates: start: 201308, end: 201308
  2. CENTRUM [Concomitant]
     Indication: THYROID DISORDER
     Dosage: ONE PILL A DAY SINCE LESS THAN TWO YEARS
  3. ROC MULTI CORREXION LIFT ANTI GRAVITY DAY MOISTURIZER SPF 30 [Suspect]
     Indication: DRY SKIN PROPHYLAXIS
     Dosage: LESS THAN A PENNY SIZE AMOUNT, TWICE
     Route: 061
     Dates: start: 201308, end: 201308

REACTIONS (2)
  - Expired drug administered [Unknown]
  - Application site hypersensitivity [Recovered/Resolved]
